FAERS Safety Report 13001900 (Version 1)
Quarter: 2016Q4

REPORT INFORMATION
  Report Type: Not Available
  Country: None (occurrence: US)
  Receive Date: 20161206
  Receipt Date: 20161206
  Transmission Date: 20170207
  Serious: No
  Sender: FDA-Public Use
  Company Number: US-AKORN-38321

PATIENT
  Age: 83 Year
  Sex: Female

DRUGS (1)
  1. DORZOLAMIDE HYDROCHLORIDE OPHTHALMIC SOLUTION [Suspect]
     Active Substance: DORZOLAMIDE HYDROCHLORIDE

REACTIONS (3)
  - Rash [None]
  - Scab [None]
  - Rash pustular [None]
